FAERS Safety Report 8214246-8 (Version None)
Quarter: 2012Q1

REPORT INFORMATION
  Report Type: 
  Country: None (occurrence: None)
  Receive Date: 20120316
  Receipt Date: 20120310
  Transmission Date: 20120608
  Serious: Yes (Death)
  Sender: FDA-Public Use
  Company Number: US-CELGENEUS-163-21880-12031397

PATIENT
  Sex: Female

DRUGS (2)
  1. PROCRIT [Concomitant]
     Dosage: 60,000 UNITS
     Route: 058
     Dates: start: 20111125
  2. REVLIMID [Suspect]
     Dosage: 10 MILLIGRAM
     Route: 048
     Dates: start: 20120227

REACTIONS (1)
  - DEATH [None]
